FAERS Safety Report 7541293-1 (Version None)
Quarter: 2011Q2

REPORT INFORMATION
  Report Type: 
  Country: None (occurrence: None)
  Receive Date: 20110610
  Receipt Date: 20110602
  Transmission Date: 20111010
  Serious: Yes (Other)
  Sender: FDA-Public Use
  Company Number: GR-AMGEN-GRCSP2011027137

PATIENT
  Age: 55 Year
  Sex: Female

DRUGS (2)
  1. CORTISONE ACETATE [Concomitant]
  2. PROLIA [Suspect]
     Indication: OSTEOPOROSIS
     Dosage: UNK
     Dates: start: 20110510

REACTIONS (4)
  - PAIN IN EXTREMITY [None]
  - GAIT DISTURBANCE [None]
  - HYPOAESTHESIA [None]
  - NASOPHARYNGITIS [None]
